FAERS Safety Report 10986967 (Version 1)
Quarter: 2015Q1

REPORT INFORMATION
  Report Type: Spontaneous
  Country: US (occurrence: None)
  Receive Date: 20150304
  Receipt Date: 20150304
  Transmission Date: 20150721
  Serious: Yes (Life-Threatening)
  Sender: FDA-Public Use
  Company Number: 2014TUS003134

PATIENT
  Age: 85 Year
  Sex: Female

DRUGS (1)
  1. PREVACID [Suspect]
     Active Substance: LANSOPRAZOLE

REACTIONS (3)
  - Feeling abnormal [None]
  - Incorrect dose administered [None]
  - Incorrect drug administration duration [None]
